FAERS Safety Report 10260599 (Version 1)
Quarter: 2014Q2

REPORT INFORMATION
  Report Type: Spontaneous
  Country: FR (occurrence: FR)
  Receive Date: 20140626
  Receipt Date: 20140626
  Transmission Date: 20141212
  Serious: Yes (Death, Other)
  Sender: FDA-Public Use
  Company Number: FR-UCBSA-2014003017

PATIENT
  Age: 78 Year
  Sex: Male

DRUGS (4)
  1. KEPPRA [Suspect]
     Indication: NERVOUS SYSTEM DISORDER
     Dosage: UNK
     Route: 048
     Dates: start: 20140313
  2. ADIAZINE [Suspect]
     Dosage: 2 DF, 3X/DAY (TID), 500MG
     Route: 048
     Dates: start: 20140314
  3. MALOCIDE [Suspect]
     Dosage: 100 MG, 2X/DAY (BID)
     Route: 048
     Dates: start: 20140314
  4. ROVALCYTE [Concomitant]
     Dosage: UNK
     Dates: start: 20140319

REACTIONS (3)
  - Stevens-Johnson syndrome [Fatal]
  - Pyrexia [Fatal]
  - Pancytopenia [Fatal]
